FAERS Safety Report 25754374 (Version 1)
Quarter: 2025Q3

REPORT INFORMATION
  Report Type: Spontaneous
  Country: EU (occurrence: EU)
  Receive Date: 20250903
  Receipt Date: 20250903
  Transmission Date: 20251021
  Serious: Yes (Congenital Anomaly)
  Sender: ACCORD
  Company Number: None

PATIENT
  Age: 1 Day
  Sex: Male
  Weight: 3.42 kg

DRUGS (1)
  1. PACLITAXEL [Suspect]
     Active Substance: PACLITAXEL
     Dates: end: 20250618

REACTIONS (2)
  - Foetal exposure during pregnancy [Recovered/Resolved]
  - Aplasia cutis congenita [Not Recovered/Not Resolved]

NARRATIVE: CASE EVENT DATE: 20250618
